FAERS Safety Report 5383125-6 (Version None)
Quarter: 2007Q2

REPORT INFORMATION
  Report Type: 
  Country: None (occurrence: None)
  Receive Date: 20070629
  Receipt Date: 20070402
  Transmission Date: 20071010
  Serious: Yes (Hospitalization)
  Sender: FDA-Public Use
  Company Number: US200606003035

PATIENT
  Age: 29 Year
  Sex: Female

DRUGS (8)
  1. HUMULIN N [Suspect]
     Indication: DIABETES MELLITUS
     Dosage: 8 U, 2/D
     Dates: start: 20060606, end: 20060806
  2. HUMALOG [Suspect]
     Indication: DIABETES MELLITUS
     Dosage: 22 U
     Dates: end: 20070105
  3. HUMALOG [Suspect]
     Indication: DIABETES MELLITUS
     Dosage: 22 U
     Dates: start: 20060829
  4. HUMULIN N PEN (HUMULIN N PEN) [Concomitant]
  5. PRENATAL VITAMINS (ASCORBIC ACID, BIOTIN, MINERALS NOS, NICOTINIC ACID [Concomitant]
  6. METHYLDOPA [Concomitant]
  7. LANTUS [Concomitant]
  8. LABETALOL HCL [Concomitant]

REACTIONS (3)
  - BLOOD PRESSURE ABNORMAL [None]
  - DRUG EXPOSURE DURING PREGNANCY [None]
  - PRE-ECLAMPSIA [None]
